FAERS Safety Report 7851685-9 (Version None)
Quarter: 2011Q4

REPORT INFORMATION
  Report Type: 
  Country: None (occurrence: None)
  Receive Date: 20111026
  Receipt Date: 20111021
  Transmission Date: 20120403
  Serious: Yes (Life-Threatening, Hospitalization)
  Sender: FDA-Public Use
  Company Number: PHHY2011MX93281

PATIENT
  Age: 79 Year
  Sex: Female

DRUGS (4)
  1. ROFUCAL [Concomitant]
     Indication: RENAL FAILURE
     Dosage: 1 DF, PER DAY
  2. EXFORGE [Suspect]
     Indication: HYPERTENSION
     Dosage: 2 DF(160/5 MG), DAILY
     Dates: start: 20070101
  3. NATRILIX SR [Concomitant]
     Indication: RENAL FAILURE
     Dosage: 1 DF, A DAY
  4. ASPIRINA PROTEC [Concomitant]
     Indication: ANTIPLATELET THERAPY
     Dosage: 1 DF, A DAY

REACTIONS (3)
  - RENAL FAILURE [None]
  - DYSURIA [None]
  - MYOCARDIAL INFARCTION [None]
